FAERS Safety Report 11193914 (Version 1)
Quarter: 2015Q2

REPORT INFORMATION
  Report Type: Spontaneous
  Country: US (occurrence: US)
  Receive Date: 20150616
  Receipt Date: 20150616
  Transmission Date: 20150821
  Serious: No
  Sender: FDA-Public Use
  Company Number: US-LPDUSPRD-20140679

PATIENT
  Sex: Female
  Weight: 74.84 kg

DRUGS (7)
  1. SIMVASTATIN. [Concomitant]
     Active Substance: SIMVASTATIN
  2. TENORMIN [Concomitant]
     Active Substance: ATENOLOL
  3. CYANOCOBALAMIN INJECTION, USP (0031-25) [Suspect]
     Active Substance: CYANOCOBALAMIN
     Route: 065
  4. NORVASC [Concomitant]
     Active Substance: AMLODIPINE BESYLATE
  5. LEVOTHYROXINE [Concomitant]
     Active Substance: LEVOTHYROXINE
  6. FISH OIL [Concomitant]
     Active Substance: FISH OIL
  7. SUNITINIB [Suspect]
     Active Substance: SUNITINIB
     Dosage: 50 MG DAILY
     Dates: start: 20140107

REACTIONS (3)
  - Pain in extremity [Not Recovered/Not Resolved]
  - Rash pruritic [Unknown]
  - Skin exfoliation [Not Recovered/Not Resolved]
